FAERS Safety Report 23312362 (Version 1)
Quarter: 2023Q4

REPORT INFORMATION
  Report Type: Spontaneous
  Country: IT (occurrence: IT)
  Receive Date: 20231219
  Receipt Date: 20231219
  Transmission Date: 20240110
  Serious: Yes (Hospitalization)
  Sender: FDA-Public Use
  Company Number: None

PATIENT
  Age: 41 Year
  Sex: Male
  Weight: 70 kg

DRUGS (1)
  1. KESIMPTA [Suspect]
     Active Substance: OFATUMUMAB
     Indication: Multiple sclerosis
     Dosage: UNK (3 INIEZIONI DA 20 MG IL GIORNO 4/5, 11/5, 18/5.SUCCESSIVE INIEZIONI DA 20 MG IL GIORNO 4 DI OGN
     Route: 058
     Dates: start: 20230504

REACTIONS (2)
  - Neutropenic sepsis [Not Recovered/Not Resolved]
  - Gingivitis ulcerative [Not Recovered/Not Resolved]

NARRATIVE: CASE EVENT DATE: 20231128
